FAERS Safety Report 21495588 (Version 1)
Quarter: 2022Q4

REPORT INFORMATION
  Report Type: Spontaneous
  Country: GB (occurrence: GB)
  Receive Date: 20221022
  Receipt Date: 20221022
  Transmission Date: 20230112
  Serious: Yes (Disabling, Other)
  Sender: FDA-Public Use
  Company Number: GB-MHRA-INP1FACACD0-86F5-4F16-8E66-349F1ECF29B1

PATIENT
  Age: 57 Year
  Sex: Female
  Weight: 97 kg

DRUGS (5)
  1. DULOXETINE [Suspect]
     Active Substance: DULOXETINE
     Indication: Arthralgia
     Dosage: 30 MILLIGRAM
     Route: 048
  2. CITALOPRAM [Concomitant]
     Active Substance: CITALOPRAM HYDROBROMIDE
     Indication: Product used for unknown indication
     Dosage: 20 MILLIGRAM, ONCE A DAY (FREQUENCY - IN 1 DAYS 20,MILLIGRAM)
     Route: 065
     Dates: start: 20190318
  3. MELOXICAM [Concomitant]
     Active Substance: MELOXICAM
     Indication: Product used for unknown indication
     Dosage: UNK
     Route: 065
  4. OMEPRAZOLE [Concomitant]
     Active Substance: OMEPRAZOLE
     Indication: Product used for unknown indication
     Dosage: 20 MILLIGRAM, ONCE A DAY (WHEN TAKING MELOXICAM)
     Route: 065
     Dates: start: 20190417
  5. ACETAMINOPHEN [Concomitant]
     Active Substance: ACETAMINOPHEN
     Indication: Product used for unknown indication
     Dosage: 8 DOSAGE FORM, AS NECESSARY(1 TO 2 CAPSULES UP TO FOUR TIMES DAILY)
     Route: 065
     Dates: start: 20190318

REACTIONS (2)
  - Bruxism [Recovering/Resolving]
  - Off label use [Unknown]

NARRATIVE: CASE EVENT DATE: 20190318
